FAERS Safety Report 11009146 (Version 3)
Quarter: 2015Q2

REPORT INFORMATION
  Report Type: Spontaneous
  Country: US (occurrence: US)
  Receive Date: 20150410
  Receipt Date: 20150625
  Transmission Date: 20150821
  Serious: Yes (Death, Hospitalization, Other)
  Sender: FDA-Public Use
  Company Number: US-009507513-1504USA003831

PATIENT
  Sex: Male
  Weight: 155.9 kg

DRUGS (1)
  1. JANUVIA [Suspect]
     Active Substance: SITAGLIPTIN PHOSPHATE
     Indication: TYPE 2 DIABETES MELLITUS
     Dosage: 100 MG, QD
     Route: 048
     Dates: start: 20090619, end: 20100720

REACTIONS (24)
  - Gout [Unknown]
  - Depression [Unknown]
  - Metastases to liver [Unknown]
  - Staphylococcal sepsis [Unknown]
  - Lymphadenopathy [Unknown]
  - Catheter placement [Unknown]
  - Pancreatic carcinoma metastatic [Fatal]
  - Dehydration [Unknown]
  - Pancreatitis acute [Unknown]
  - Barrett^s oesophagus [Unknown]
  - Sleep apnoea syndrome [Unknown]
  - Hepatic cirrhosis [Unknown]
  - Pancreatitis chronic [Not Recovered/Not Resolved]
  - Stent placement [Unknown]
  - Febrile neutropenia [Unknown]
  - Splenomegaly [Unknown]
  - Gastric mucosa erythema [Unknown]
  - Dehydration [Unknown]
  - Thrombocytopenia [Unknown]
  - Hernia [Unknown]
  - Hypertension [Unknown]
  - Hyperlipidaemia [Unknown]
  - Dysthymic disorder [Unknown]
  - Gastrooesophageal reflux disease [Unknown]

NARRATIVE: CASE EVENT DATE: 2010
